FAERS Safety Report 5695291-3 (Version None)
Quarter: 2008Q2

REPORT INFORMATION
  Report Type: 
  Country: None (occurrence: None)
  Receive Date: 20080404
  Receipt Date: 20080327
  Transmission Date: 20081010
  Serious: Yes (Other)
  Sender: FDA-Public Use
  Company Number: AU-PFIZER INC-2008028375

PATIENT
  Sex: Male

DRUGS (4)
  1. VIAGRA [Suspect]
  2. FOSAMAX PLUS D [Concomitant]
  3. GLUCOSAMINE HYDROCHLORIDE [Concomitant]
  4. NEXIUM [Concomitant]

REACTIONS (1)
  - PANCREATITIS RELAPSING [None]
